FAERS Safety Report 14246783 (Version 1)
Quarter: 2017Q4

REPORT INFORMATION
  Report Type: Spontaneous
  Country: US (occurrence: None)
  Receive Date: 20171201
  Receipt Date: 20171201
  Transmission Date: 20180321
  Serious: No
  Sender: FDA-Public Use
  Company Number: None

PATIENT
  Age: 42 Year
  Sex: Male

DRUGS (1)
  1. INFLIXIMAB [Suspect]
     Active Substance: INFLIXIMAB
     Indication: CROHN^S DISEASE
     Dosage: 400MG EVERY 8 WEEKS IV
     Route: 042
     Dates: start: 20160513, end: 20171130

REACTIONS (4)
  - Throat irritation [None]
  - Infusion related reaction [None]
  - Cough [None]
  - Skin discolouration [None]

NARRATIVE: CASE EVENT DATE: 20171130
